FAERS Safety Report 9671096 (Version 1)
Quarter: 2013Q4

REPORT INFORMATION
  Report Type: Spontaneous
  Country: US (occurrence: US)
  Receive Date: 20131106
  Receipt Date: 20131106
  Transmission Date: 20140711
  Serious: No
  Sender: FDA-Public Use
  Company Number: US-PFIZER INC-2013312544

PATIENT
  Age: 90 Year
  Sex: Female
  Weight: 61.22 kg

DRUGS (11)
  1. GLIBENCLAMIDE [Suspect]
     Indication: DIABETES MELLITUS
     Dosage: UNK
  2. ZYVOX [Suspect]
     Indication: LOCALISED INFECTION
     Dosage: 600 MG, 2X/DAY
     Dates: start: 201310
  3. ROSUVASTATIN CALCIUM [Suspect]
     Indication: BLOOD CHOLESTEROL INCREASED
     Dosage: UNK
     Route: 048
  4. ISOSORBIDE [Concomitant]
     Indication: CARDIAC DISORDER
     Dosage: UNK
  5. NITROFURANTOIN [Concomitant]
     Dosage: UNK
  6. DONEPEZIL [Concomitant]
     Dosage: UNK
  7. LISINOPRIL [Concomitant]
     Dosage: UNK
  8. METOPROLOL [Concomitant]
     Dosage: UNK
  9. OMEPRAZOLE [Concomitant]
     Dosage: UNK
  10. CLOPIDOGREL [Concomitant]
     Dosage: UNK
  11. ASPIRIN [Concomitant]
     Dosage: 81 MG, 2X/DAY

REACTIONS (7)
  - Blood glucose decreased [Unknown]
  - Back disorder [Unknown]
  - Asthenia [Unknown]
  - Diarrhoea [Not Recovered/Not Resolved]
  - Nausea [Not Recovered/Not Resolved]
  - Hypersomnia [Unknown]
  - Wrong technique in drug usage process [Unknown]
